FAERS Safety Report 6415726-8 (Version None)
Quarter: 2009Q4

REPORT INFORMATION
  Report Type: 
  Country: None (occurrence: None)
  Receive Date: 20091027
  Receipt Date: 20091014
  Transmission Date: 20100525
  Serious: Yes (Hospitalization, Other)
  Sender: FDA-Public Use
  Company Number: CA-PFIZER INC-2009267475

PATIENT
  Age: 43 Year

DRUGS (8)
  1. CHAMPIX [Suspect]
     Indication: SMOKING CESSATION THERAPY
     Dosage: UNK
     Dates: start: 20090825, end: 20090101
  2. ZOPLICONE [Concomitant]
     Dosage: 15 MG, 1X/DAY AT BEDTIME
  3. GABAPENTIN [Concomitant]
     Dosage: 900 UNK, 1X/DAY AT BEDTIME
  4. LAMOTRIGINE [Concomitant]
     Dosage: 250 MG, 2X/DAY
  5. CELEXA [Concomitant]
     Dosage: 80 MG, 1X/DAY IN THE MORNING
  6. METFORMIN [Concomitant]
     Indication: TYPE 2 DIABETES MELLITUS
     Dosage: 500 MG, 3X/DAY
  7. INSULIN [Concomitant]
     Indication: TYPE 2 DIABETES MELLITUS
     Dosage: UNK
  8. SEROQUEL [Concomitant]
     Dosage: 25-150MG AS NEEDED UP TO A 5 TIMES A DAY

REACTIONS (9)
  - BLOOD CREATINE PHOSPHOKINASE ABNORMAL [None]
  - BLOOD GASES ABNORMAL [None]
  - BLOOD POTASSIUM ABNORMAL [None]
  - CEREBRAL INFARCTION [None]
  - COMPUTERISED TOMOGRAM ABNORMAL [None]
  - GRAND MAL CONVULSION [None]
  - HYPOXIA [None]
  - PNEUMONIA [None]
  - SEPSIS [None]
